FAERS Safety Report 6679649-1 (Version None)
Quarter: 2010Q2

REPORT INFORMATION
  Report Type: 
  Country: None (occurrence: None)
  Receive Date: 20100413
  Receipt Date: 20100407
  Transmission Date: 20101027
  Serious: Yes (Hospitalization)
  Sender: FDA-Public Use
  Company Number: A0854355A

PATIENT
  Age: 47 Year
  Sex: Male
  Weight: 84.8 kg

DRUGS (16)
  1. ABACAVIR [Suspect]
     Dosage: 600MG PER DAY
     Dates: start: 20061031
  2. FOSAMPRENAVIR [Suspect]
     Dosage: 700MG TWICE PER DAY
     Dates: start: 20070918
  3. NORVIR [Suspect]
     Dosage: 100MG TWICE PER DAY
     Dates: start: 20070918
  4. VIREAD [Suspect]
     Dosage: 300MG WEEKLY
     Dates: start: 20090707
  5. LIDOCAINE [Concomitant]
     Route: 061
  6. LOMOTIL [Concomitant]
  7. RENAGEL [Concomitant]
     Dosage: 3TAB THREE TIMES PER DAY
  8. OXYBUTYNIN [Concomitant]
     Dosage: 5MG TWICE PER DAY
  9. ZYPREXA [Concomitant]
     Dosage: 10MG TWICE PER DAY
  10. EFFEXOR XR [Concomitant]
     Dosage: 150MG PER DAY
  11. GABAPENTIN [Concomitant]
     Dosage: 400MG AT NIGHT
  12. DIVALPROEX SODIUM [Concomitant]
     Dosage: 500MG TWICE PER DAY
  13. PANTOPRAZOLE [Concomitant]
     Dosage: 40MG PER DAY
  14. METOPROLOL SUCCINATE [Concomitant]
     Dosage: 200MG TWICE PER DAY
  15. CALCIUM CARBONATE [Concomitant]
  16. FOLIC ACID [Concomitant]
     Dosage: 1MG PER DAY

REACTIONS (3)
  - DYSPNOEA [None]
  - HYPERTENSION [None]
  - NON-CARDIAC CHEST PAIN [None]
